FAERS Safety Report 7833610 (Version 11)
Quarter: 2013Q2

REPORT INFORMATION
  Report Type: Spontaneous
  Country: US (occurrence: US)
  Receive Date: 20110228
  Receipt Date: 20130524
  Transmission Date: 20140414
  Serious: Yes (Hospitalization, Other)
  Sender: FDA-Public Use
  Company Number: US-ASTRAZENECA-2010SE55722

PATIENT
  Age: 69 Year
  Sex: Female
  Weight: 81.6 kg

DRUGS (22)
  1. NEXIUM [Suspect]
     Indication: GASTROOESOPHAGEAL REFLUX DISEASE
     Route: 048
     Dates: start: 2003
  2. NEXIUM [Suspect]
     Indication: GASTRIC DISORDER
     Route: 048
     Dates: start: 2003
  3. NEXIUM [Suspect]
     Indication: GASTROOESOPHAGEAL REFLUX DISEASE
     Route: 048
     Dates: start: 2008
  4. NEXIUM [Suspect]
     Indication: GASTRIC DISORDER
     Route: 048
     Dates: start: 2008
  5. NEXIUM [Suspect]
     Indication: GASTROOESOPHAGEAL REFLUX DISEASE
     Dosage: SOMETIMES TAKES TWO PER DAY
     Route: 048
  6. NEXIUM [Suspect]
     Indication: GASTRIC DISORDER
     Dosage: SOMETIMES TAKES TWO PER DAY
     Route: 048
  7. SEROQUEL [Suspect]
     Indication: POST-TRAUMATIC STRESS DISORDER
     Route: 048
     Dates: start: 2006
  8. SEROQUEL [Suspect]
     Indication: POST-TRAUMATIC STRESS DISORDER
     Dosage: 100MG 1 TABLET BID AND 4 TABLETS HS
     Route: 048
  9. SEROQUEL [Suspect]
     Indication: POST-TRAUMATIC STRESS DISORDER
     Route: 048
     Dates: start: 2008
  10. IMODIUM [Concomitant]
  11. ENALAPRIL [Concomitant]
     Indication: BLOOD PRESSURE ABNORMAL
  12. APRAZALEM [Concomitant]
  13. PRAVASTATIN [Concomitant]
  14. DIOVAN [Concomitant]
  15. ESTRADIOL [Concomitant]
  16. SONATA [Concomitant]
  17. NUVIGIL [Concomitant]
  18. METFORMIN [Concomitant]
     Indication: DIABETES MELLITUS
     Dates: start: 2011
  19. GLYBURIDE [Concomitant]
     Indication: DIABETES MELLITUS
     Dates: start: 2011
  20. TRIAZOLAM [Concomitant]
     Indication: SLEEP DISORDER
     Dates: start: 2011
  21. PRAVASTATIN SODIUM [Concomitant]
     Indication: BLOOD PRESSURE ABNORMAL
     Dates: start: 2011
  22. MIRTAZAPINE [Concomitant]
     Indication: SLEEP DISORDER

REACTIONS (27)
  - Wrist fracture [Unknown]
  - Lower limb fracture [Unknown]
  - Fall [Unknown]
  - Breast cancer female [Unknown]
  - Metastases to lymph nodes [Unknown]
  - Neoplasm malignant [Unknown]
  - Post-traumatic stress disorder [Unknown]
  - Diverticulitis [Unknown]
  - Cranial nerve injury [Unknown]
  - Weight loss poor [Unknown]
  - Dysuria [Unknown]
  - Stress [Unknown]
  - Pulmonary function test decreased [Unknown]
  - Weight decreased [Unknown]
  - Breast disorder [Unknown]
  - Pyrexia [Unknown]
  - Weight increased [Unknown]
  - Procedural pain [Unknown]
  - Visual impairment [Not Recovered/Not Resolved]
  - Diarrhoea [Unknown]
  - Malaise [Unknown]
  - Cholelithiasis [Unknown]
  - Vomiting [Unknown]
  - Abdominal discomfort [Not Recovered/Not Resolved]
  - Intentional drug misuse [Unknown]
  - Off label use [Not Recovered/Not Resolved]
  - Drug ineffective for unapproved indication [Unknown]
